FAERS Safety Report 22530816 (Version 8)
Quarter: 2023Q4

REPORT INFORMATION
  Report Type: Spontaneous
  Country: US (occurrence: US)
  Receive Date: 20230607
  Receipt Date: 20231115
  Transmission Date: 20240109
  Serious: No
  Sender: FDA-Public Use
  Company Number: US-PFIZER INC-202300066823

PATIENT
  Age: 73 Year
  Sex: Female
  Weight: 53.515 kg

DRUGS (8)
  1. IBRANCE [Suspect]
     Active Substance: PALBOCICLIB
     Indication: Breast cancer female
     Dosage: 100 MG, CYCLIC (21 DAYS ON 7 DAYS OFF)
     Dates: start: 20221121
  2. IBRANCE [Suspect]
     Active Substance: PALBOCICLIB
     Dosage: 125 MG
     Route: 048
     Dates: start: 202302, end: 202304
  3. IBRANCE [Suspect]
     Active Substance: PALBOCICLIB
     Dosage: 125 MG
     Route: 048
     Dates: start: 202302, end: 202304
  4. IBRANCE [Suspect]
     Active Substance: PALBOCICLIB
     Dosage: 100 MG
  5. IBRANCE [Suspect]
     Active Substance: PALBOCICLIB
     Dosage: 100 MG, CYCLIC (1 TAB QD FOR 21 DAYS OF 28 DAY CYCLE)
     Route: 048
  6. IBRANCE [Suspect]
     Active Substance: PALBOCICLIB
     Dosage: 100 MG
  7. LETROZOLE [Concomitant]
     Active Substance: LETROZOLE
     Indication: Breast cancer female
     Dosage: UNK
  8. FASLODEX [Concomitant]
     Active Substance: FULVESTRANT
     Indication: Breast cancer female
     Dosage: UNK

REACTIONS (16)
  - White blood cell count decreased [Recovered/Resolved]
  - Neoplasm progression [Recovered/Resolved]
  - Constipation [Recovered/Resolved]
  - Dizziness [Recovered/Resolved]
  - Fatigue [Unknown]
  - Increased appetite [Unknown]
  - Thirst [Unknown]
  - Alopecia [Unknown]
  - Back pain [Unknown]
  - COVID-19 [Unknown]
  - Taste disorder [Unknown]
  - Decreased appetite [Unknown]
  - Malaise [Unknown]
  - Drug intolerance [Unknown]
  - Somnolence [Unknown]
  - Pain [Unknown]
